FAERS Safety Report 15197457 (Version 1)
Quarter: 2018Q4

REPORT INFORMATION
  Report Type: Spontaneous
  Country: US (occurrence: US)
  Receive Date: 20180725
  Receipt Date: 20180725
  Transmission Date: 20190204
  Serious: No
  Sender: FDA-Public Use
  Company Number: US-ABBVIE-18S-163-2260553-00

PATIENT
  Sex: Female

DRUGS (2)
  1. LEVOTHYROXINE 50 [Suspect]
     Active Substance: LEVOTHYROXINE
     Dosage: 2 PER DAY
     Route: 048
  2. LEVOTHYROXINE 50 [Suspect]
     Active Substance: LEVOTHYROXINE
     Indication: PRODUCT USED FOR UNKNOWN INDICATION
     Dosage: 2 PER DAY
     Route: 048

REACTIONS (1)
  - Feeling abnormal [Unknown]
